FAERS Safety Report 24561159 (Version 1)
Quarter: 2024Q4

REPORT INFORMATION
  Report Type: Spontaneous
  Country: US (occurrence: None)
  Receive Date: 20241028
  Receipt Date: 20241028
  Transmission Date: 20250114
  Serious: Yes (Hospitalization)
  Sender: Public
  Company Number: None

PATIENT
  Age: 68 Year
  Sex: Female
  Weight: 76.5 kg

DRUGS (14)
  1. OZEMPIC [Suspect]
     Active Substance: SEMAGLUTIDE
     Indication: Diabetes mellitus
     Dosage: OTHER FREQUENCY : ONCE WEEKLY;?
     Route: 058
     Dates: start: 20210707, end: 20241011
  2. METOPROLOL [Concomitant]
  3. XOPENEX [Concomitant]
  4. LEVOTHYROXINE [Concomitant]
  5. SIMVASTATIN [Concomitant]
     Active Substance: SIMVASTATIN
  6. DALIRESP [Concomitant]
  7. TRELEGY [Concomitant]
  8. cpap machine [Concomitant]
  9. ASPIRIN [Concomitant]
     Active Substance: ASPIRIN
  10. cvs allergy [Concomitant]
  11. vitamin c 1000 [Concomitant]
  12. D 400 [Concomitant]
  13. turmeric [Concomitant]
  14. probotic [Concomitant]

REACTIONS (1)
  - Biliary colic [None]

NARRATIVE: CASE EVENT DATE: 20241011
